FAERS Safety Report 4723443-5 (Version None)
Quarter: 2005Q3

REPORT INFORMATION
  Report Type: 
  Country: None (occurrence: None)
  Receive Date: 20050725
  Receipt Date: 20050712
  Transmission Date: 20060218
  Serious: Yes (Life-Threatening, Hospitalization)
  Sender: FDA-Public Use
  Company Number: ES-AMGEN-UK142027

PATIENT
  Age: 63 Year
  Sex: Male

DRUGS (5)
  1. ARANESP [Suspect]
     Indication: ANAEMIA
     Route: 065
     Dates: start: 20040101, end: 20050302
  2. PENTOXIFYLLINE [Concomitant]
     Route: 048
  3. ASPIRIN [Concomitant]
     Route: 048
     Dates: start: 20050201
  4. AMITRIPTYLINE HCL [Concomitant]
     Route: 065
  5. ACTRAPID INSULIN NOVO [Concomitant]
     Route: 058

REACTIONS (2)
  - CEREBROVASCULAR DISORDER [None]
  - DYSARTHRIA [None]
